FAERS Safety Report 4740907-9 (Version None)
Quarter: 2005Q3

REPORT INFORMATION
  Report Type: 
  Country: None (occurrence: None)
  Receive Date: 20050810
  Receipt Date: 20050802
  Transmission Date: 20060218
  Serious: Yes (Life-Threatening)
  Sender: FDA-Public Use
  Company Number: FR-BRISTOL-MYERS SQUIBB COMPANY-13061668

PATIENT
  Age: 50 Year
  Sex: Male
  Weight: 58 kg

DRUGS (3)
  1. TAXOL [Suspect]
     Indication: SMALL CELL CARCINOMA
     Route: 042
     Dates: start: 20050507, end: 20050507
  2. CARBOPLATINE [Suspect]
     Indication: SMALL CELL CARCINOMA
     Route: 042
     Dates: start: 20050705, end: 20050705
  3. DEXTROSE 5% [Suspect]
     Indication: SMALL CELL CARCINOMA
     Route: 042
     Dates: start: 20050705, end: 20050705

REACTIONS (3)
  - ANAPHYLACTIC SHOCK [None]
  - CARDIAC ARREST [None]
  - RESPIRATORY ARREST [None]
